FAERS Safety Report 9349867 (Version 4)
Quarter: 2016Q2

REPORT INFORMATION
  Report Type: Spontaneous
  Country: US (occurrence: US)
  Receive Date: 20130611
  Receipt Date: 20160413
  Transmission Date: 20160815
  Serious: Yes (Other)
  Sender: FDA-Public Use
  Company Number: ADR-2013-00966

PATIENT
  Age: 49 Year
  Sex: Male

DRUGS (3)
  1. HYDROMORPHONE [Suspect]
     Active Substance: HYDROMORPHONE
  2. BACLOFEN. [Suspect]
     Active Substance: BACLOFEN
     Route: 037
  3. ROXICODONE [Concomitant]
     Active Substance: OXYCODONE HYDROCHLORIDE

REACTIONS (8)
  - Drug hypersensitivity [Unknown]
  - No therapeutic response [Unknown]
  - Fall [Unknown]
  - Abasia [Unknown]
  - Weight decreased [Unknown]
  - Medical device pain [Unknown]
  - Hypoaesthesia [Unknown]
  - Pain [Unknown]
